FAERS Safety Report 6185112-7 (Version None)
Quarter: 2009Q2

REPORT INFORMATION
  Report Type: 
  Country: None (occurrence: None)
  Receive Date: 20090507
  Receipt Date: 20090424
  Transmission Date: 20091009
  Serious: Yes (Other)
  Sender: FDA-Public Use
  Company Number: 2009JP002448

PATIENT
  Age: 76 Year
  Sex: Female
  Weight: 47 kg

DRUGS (9)
  1. VESICARE [Suspect]
     Indication: HYPERTONIC BLADDER
     Dosage: 5MG, UID/QID
     Dates: start: 20081122, end: 20090405
  2. DIGOXIN [Concomitant]
  3. CARVEDILOL [Concomitant]
  4. AMLODIIN (AMLODIPINE BESILATEA) [Concomitant]
  5. WARFARIN SODIUM [Concomitant]
  6. PRAVASTATIN [Concomitant]
  7. ALESION (EPINASTINE HYDROCHLORIDE) [Concomitant]
  8. MUCOSOLVAN L (AMBROXOL HYDROCHLORIDE) [Concomitant]
  9. SELBEX (TEPRENONE) [Concomitant]

REACTIONS (1)
  - DELIRIUM [None]
